FAERS Safety Report 11345521 (Version 2)
Quarter: 2015Q3

REPORT INFORMATION
  Report Type: Spontaneous
  Country: US (occurrence: US)
  Receive Date: 20150806
  Receipt Date: 20150812
  Transmission Date: 20151125
  Serious: No
  Sender: FDA-Public Use
  Company Number: US-PFIZER INC-2015261381

PATIENT
  Age: 61 Year
  Sex: Female

DRUGS (1)
  1. DETROL LA [Suspect]
     Active Substance: TOLTERODINE TARTRATE
     Indication: MICTURITION URGENCY
     Dosage: 4 MG, 1X/DAY
     Route: 048
     Dates: start: 201507, end: 20150802

REACTIONS (13)
  - Micturition urgency [Unknown]
  - Abdominal distension [Unknown]
  - Headache [Unknown]
  - Nervousness [Unknown]
  - Sensory disturbance [Unknown]
  - Abdominal pain upper [Unknown]
  - Discomfort [Unknown]
  - Bladder dilatation [Unknown]
  - Hyperhidrosis [Unknown]
  - Blood pressure diastolic increased [Unknown]
  - Abdominal discomfort [Unknown]
  - Paraesthesia [Unknown]
  - Feeling abnormal [Unknown]
